FAERS Safety Report 14282420 (Version 1)
Quarter: 2017Q4

REPORT INFORMATION
  Report Type: Spontaneous
  Country: JP (occurrence: JP)
  Receive Date: 20171213
  Receipt Date: 20171213
  Transmission Date: 20180321
  Serious: Yes (Hospitalization)
  Sender: FDA-Public Use
  Company Number: JP-PFIZER INC-2017522597

PATIENT
  Age: 61 Year
  Sex: Male

DRUGS (1)
  1. SOLANAX [Suspect]
     Active Substance: ALPRAZOLAM
     Dosage: 0.4 MG, 3X/DAY
     Route: 048

REACTIONS (4)
  - Irritability [Unknown]
  - Plasma cell myeloma [Unknown]
  - Anxiety [Unknown]
  - Sedation complication [Unknown]
